FAERS Safety Report 8791139 (Version 1)
Quarter: 2012Q4

REPORT INFORMATION
  Report Type: Spontaneous
  Country: US (occurrence: None)
  Receive Date: 20120913
  Receipt Date: 20120913
  Transmission Date: 20130627
  Serious: Yes (Disabling)
  Sender: FDA-Public Use
  Company Number: None

PATIENT
  Age: 62 Year
  Sex: Male
  Weight: 92.53 kg

DRUGS (1)
  1. GABAPENTIN [Suspect]
     Indication: JOINT PAIN
     Dosage: 3 - Time A DAY
     Dates: start: 20120727, end: 20120815

REACTIONS (4)
  - Convulsion [None]
  - Apraxia [None]
  - Eye disorder [None]
  - Facial pain [None]
